FAERS Safety Report 7514524-1 (Version None)
Quarter: 2011Q2

REPORT INFORMATION
  Report Type: 
  Country: None (occurrence: None)
  Receive Date: 20110601
  Receipt Date: 20101207
  Transmission Date: 20111010
  Serious: No
  Sender: FDA-Public Use
  Company Number: US-BAYER-2010-008631

PATIENT
  Sex: Female

DRUGS (1)
  1. MIRENA [Suspect]
     Indication: CONTRACEPTION
     Dosage: 20 ?G, CONT
     Dates: start: 20100927, end: 20101101

REACTIONS (8)
  - URINARY TRACT INFECTION [None]
  - BLOOD URINE PRESENT [None]
  - POST PROCEDURAL COMPLICATION [None]
  - ABDOMINAL PAIN [None]
  - POLLAKIURIA [None]
  - DEVICE EXPULSION [None]
  - PROCEDURAL PAIN [None]
  - POST PROCEDURAL HAEMORRHAGE [None]
